FAERS Safety Report 21716130 (Version 1)
Quarter: 2022Q4

REPORT INFORMATION
  Report Type: Spontaneous
  Country: US (occurrence: None)
  Receive Date: 20221209
  Receipt Date: 20221209
  Transmission Date: 20230113
  Serious: No
  Sender: FDA-Public Use
  Company Number: None

PATIENT
  Age: 48 Year
  Sex: Female

DRUGS (5)
  1. HUMIRA [Suspect]
     Active Substance: ADALIMUMAB
     Indication: Psoriatic arthropathy
     Dosage: 40MG QOW SUBCUTANEOUS?
     Route: 058
     Dates: start: 20221117
  2. AMITRIPTYLINE [Concomitant]
     Active Substance: AMITRIPTYLINE
  3. HYDROCHLOROTHIAZIDE [Concomitant]
     Active Substance: HYDROCHLOROTHIAZIDE
  4. B-COMPLEX VITAMIN [Concomitant]
  5. IRON [Concomitant]
     Active Substance: IRON

REACTIONS (3)
  - Condition aggravated [None]
  - Pain [None]
  - Loss of personal independence in daily activities [None]

NARRATIVE: CASE EVENT DATE: 20221209
